FAERS Safety Report 12071914 (Version 1)
Quarter: 2016Q1

REPORT INFORMATION
  Report Type: Spontaneous
  Country: IT (occurrence: IT)
  Receive Date: 20160212
  Receipt Date: 20160212
  Transmission Date: 20160526
  Serious: Yes (Other)
  Sender: FDA-Public Use
  Company Number: IT-BAUSCH-BL-2016-003409

PATIENT
  Age: 26 Year

DRUGS (2)
  1. DOXYCYCLINE. [Suspect]
     Active Substance: DOXYCYCLINE
     Indication: RELAPSING FEVER
     Route: 065
  2. CEFTRIAXONE. [Suspect]
     Active Substance: CEFTRIAXONE
     Indication: RELAPSING FEVER
     Route: 065

REACTIONS (1)
  - Jarisch-Herxheimer reaction [Unknown]
